FAERS Safety Report 7875995 (Version 3)
Quarter: 2012Q4

REPORT INFORMATION
  Report Type: 
  Country: US (occurrence: US)
  Receive Date: 20110329
  Receipt Date: 20121106
  Transmission Date: 20130627
  Serious: Yes (Hospitalization)
  Sender: FDA-Public Use
  Company Number: US-ASTRAZENECA-2011SE16314

PATIENT
  Age: 45 Year
  Sex: Male
  Weight: 90.7 kg

DRUGS (12)
  1. SEROQUEL [Suspect]
     Indication: BIPOLAR DISORDER
     Route: 048
  2. SEROQUEL [Suspect]
     Indication: SLEEP DISORDER
     Route: 048
  3. SEROQUEL [Suspect]
     Indication: BIPOLAR DISORDER
     Route: 048
  4. SEROQUEL [Suspect]
     Indication: SLEEP DISORDER
     Route: 048
  5. SEROQUEL [Suspect]
     Indication: BIPOLAR DISORDER
     Route: 048
  6. SEROQUEL [Suspect]
     Indication: SLEEP DISORDER
     Route: 048
  7. SEROQUEL [Suspect]
     Indication: BIPOLAR DISORDER
     Route: 048
  8. SEROQUEL [Suspect]
     Indication: SLEEP DISORDER
     Route: 048
  9. SEROQUEL [Suspect]
     Indication: BIPOLAR DISORDER
     Route: 048
  10. SEROQUEL [Suspect]
     Indication: SLEEP DISORDER
     Route: 048
  11. ANTIBIOTIC [Concomitant]
  12. TRAZODONE [Concomitant]
     Indication: SLEEP DISORDER
     Route: 048

REACTIONS (8)
  - Pneumonia [Unknown]
  - Emphysema [Unknown]
  - Asthma [Unknown]
  - Malaise [Unknown]
  - Insomnia [Unknown]
  - Chronic obstructive pulmonary disease [Unknown]
  - Vomiting [Unknown]
  - Intentional drug misuse [Unknown]
